FAERS Safety Report 6134253-9 (Version None)
Quarter: 2009Q1

REPORT INFORMATION
  Report Type: 
  Country: None (occurrence: None)
  Receive Date: 20090325
  Receipt Date: 20090310
  Transmission Date: 20090719
  Serious: Yes (Hospitalization)
  Sender: FDA-Public Use
  Company Number: 2009S1004853

PATIENT
  Age: 85 Year
  Sex: Male
  Weight: 74 kg

DRUGS (3)
  1. ENALAPRIL MALEATE [Suspect]
     Indication: HYPERTENSION
     Dosage: 10 MG;DAILY;ORAL
     Route: 048
  2. METOPROLOL TARTRATE [Suspect]
     Indication: HYPERTENSION
     Dosage: 50 MG;DAILY;ORAL
     Route: 048
  3. SPIRO (SPIRONOLACTONE) [Suspect]
     Indication: HYPERTENSION
     Dosage: 25 MG;DAILY;ORAL
     Route: 048

REACTIONS (2)
  - HYPOTENSION [None]
  - TACHYARRHYTHMIA [None]
